FAERS Safety Report 9526143 (Version 1)
Quarter: 2013Q3

REPORT INFORMATION
  Report Type: Report from Study
  Country: US (occurrence: US)
  Receive Date: 20130916
  Receipt Date: 20130916
  Transmission Date: 20140515
  Serious: Yes (Hospitalization)
  Sender: FDA-Public Use
  Company Number: US-ROCHE-1274423

PATIENT
  Age: 69 Year
  Sex: Female

DRUGS (5)
  1. HERCEPTIN [Suspect]
     Indication: BREAST CANCER
     Route: 065
  2. HERCEPTIN [Suspect]
     Route: 065
  3. PARAPLATIN [Concomitant]
     Route: 065
  4. TAXOTERE [Concomitant]
     Route: 065
  5. ARIMIDEX [Concomitant]
     Route: 065

REACTIONS (1)
  - Pneumonia [Unknown]
